FAERS Safety Report 10579512 (Version 2)
Quarter: 2015Q1

REPORT INFORMATION
  Report Type: Spontaneous
  Country: US (occurrence: US)
  Receive Date: 20141112
  Receipt Date: 20150330
  Transmission Date: 20150720
  Serious: Yes (Hospitalization)
  Sender: FDA-Public Use
  Company Number: US-BAYER-2014-166454

PATIENT
  Age: 49 Year
  Sex: Female
  Weight: 70.75 kg

DRUGS (9)
  1. IMITREX [Concomitant]
     Active Substance: SUMATRIPTAN\SUMATRIPTAN SUCCINATE
     Dosage: 100 MG, AS DIRECTED
     Dates: start: 20090520
  2. MIRENA [Suspect]
     Active Substance: LEVONORGESTREL
     Indication: METRORRHAGIA
     Dosage: 20 MCG/24HR, CONT
     Route: 015
     Dates: start: 200805, end: 20090702
  3. TOPAMAX [Concomitant]
     Active Substance: TOPIRAMATE
     Dosage: 25 MG, 5 TABS DAILY
     Dates: start: 20090520
  4. LIDODERM [Concomitant]
     Active Substance: LIDOCAINE
     Dosage: APPLY UP TO 3 FOR 12 HOURS PER DAY
     Route: 061
     Dates: start: 20090520
  5. XANAX [Concomitant]
     Active Substance: ALPRAZOLAM
     Indication: ANXIETY
     Dosage: 0.5 MG, TID AS NEEDED
     Route: 048
     Dates: start: 20090520
  6. FLEXERIL [Concomitant]
     Active Substance: CYCLOBENZAPRINE HYDROCHLORIDE
     Dosage: 10 MG, TID AS NEEDED
     Route: 048
     Dates: start: 20090520
  7. NORCO [Concomitant]
     Active Substance: ACETAMINOPHEN\HYDROCODONE BITARTRATE
     Dosage: 7.5-325 MG, 1 TO 2 EVERY 8 HOURS AS NEEDED
     Dates: start: 20090520
  8. REBIF [Concomitant]
     Active Substance: INTERFERON BETA-1A
     Dosage: 44 MCG/0.5 ML SOLUTION THREE TIMES A WEEK
     Dates: start: 20090520
  9. PROVIGIL [Concomitant]
     Active Substance: MODAFINIL
     Dosage: 200 MG, DAILY
     Dates: start: 20090520

REACTIONS (16)
  - Uterine perforation [Not Recovered/Not Resolved]
  - Gastrointestinal perforation [None]
  - Abdominal pain [Not Recovered/Not Resolved]
  - Injury [Not Recovered/Not Resolved]
  - Acute kidney injury [None]
  - Anxiety [None]
  - Insomnia [None]
  - Dyspnoea [None]
  - Septic shock [None]
  - Gastrointestinal motility disorder [None]
  - Psychological trauma [None]
  - Frequent bowel movements [None]
  - Scar [None]
  - Depression [None]
  - Injury [None]
  - Stress [None]

NARRATIVE: CASE EVENT DATE: 20090616
